FAERS Safety Report 7862822-4 (Version None)
Quarter: 2011Q4

REPORT INFORMATION
  Report Type: 
  Country: None (occurrence: None)
  Receive Date: 20111026
  Receipt Date: 20111012
  Transmission Date: 20120403
  Serious: Yes (Hospitalization)
  Sender: FDA-Public Use
  Company Number: 1000024656

PATIENT
  Age: 80 Year
  Sex: Female

DRUGS (6)
  1. AMOXICILLIN [Suspect]
     Dosage: ORAL
     Route: 048
     Dates: start: 20110701, end: 20110810
  2. NEXIUM [Suspect]
     Dosage: ORAL
     Route: 048
     Dates: start: 20110701, end: 20110810
  3. ESCITALOPRAM [Suspect]
     Dosage: ORAL
     Route: 048
     Dates: end: 20110810
  4. CLARITHROMYCIN [Suspect]
     Dosage: ORAL
     Route: 048
     Dates: start: 20110701, end: 20110810
  5. FLAGYL [Suspect]
     Dosage: ORAL
     Route: 048
     Dates: start: 20110701, end: 20110810
  6. ARICEPT [Suspect]
     Dosage: ORAL
     Route: 048
     Dates: end: 20110810

REACTIONS (3)
  - HELICOBACTER INFECTION [None]
  - CYTOLYTIC HEPATITIS [None]
  - GASTRODUODENAL ULCER [None]
